FAERS Safety Report 9201769 (Version 1)
Quarter: 2013Q2

REPORT INFORMATION
  Report Type: Spontaneous
  Country: US (occurrence: US)
  Receive Date: 20130401
  Receipt Date: 20130401
  Transmission Date: 20140414
  Serious: Yes (Other)
  Sender: FDA-Public Use
  Company Number: US-ASTRAZENECA-2013SE19768

PATIENT
  Age: 82 Year
  Sex: Male
  Weight: 97.5 kg

DRUGS (6)
  1. NEXIUM [Suspect]
     Indication: BARRETT^S OESOPHAGUS
     Route: 048
  2. OMEPRAZOLE [Suspect]
     Indication: BARRETT^S OESOPHAGUS
     Route: 048
  3. EFFEXOR [Concomitant]
     Indication: DEPRESSION
     Dates: start: 2003
  4. KLONOPIN [Concomitant]
     Indication: ANXIETY
     Dates: start: 2003
  5. ASPIRIN [Concomitant]
     Indication: STENT PLACEMENT
     Dates: start: 2008
  6. PLAVIX [Concomitant]
     Indication: STENT PLACEMENT
     Dates: start: 2008

REACTIONS (5)
  - Thrombosis [Unknown]
  - Tinnitus [Not Recovered/Not Resolved]
  - Amnesia [Not Recovered/Not Resolved]
  - Renal impairment [Not Recovered/Not Resolved]
  - Off label use [Unknown]
